FAERS Safety Report 7955068-2 (Version None)
Quarter: 2011Q4

REPORT INFORMATION
  Report Type: 
  Country: None (occurrence: None)
  Receive Date: 20111202
  Receipt Date: 20111122
  Transmission Date: 20120403
  Serious: Yes (Hospitalization)
  Sender: FDA-Public Use
  Company Number: ES-ROCHE-1015771

PATIENT
  Sex: Male
  Weight: 104 kg

DRUGS (3)
  1. COPEGUS [Suspect]
     Indication: HEPATITIS C
     Route: 048
     Dates: start: 20110928, end: 20110928
  2. BLINDED BI 201335 (HCV PROTEASE INHIBITOR) [Suspect]
     Indication: HEPATITIS C
     Route: 048
     Dates: start: 20110928, end: 20110928
  3. PEGINTERFERON ALFA-2A [Suspect]
     Indication: HEPATITIS C
     Route: 042
     Dates: start: 20110928, end: 20110928

REACTIONS (5)
  - PYREXIA [None]
  - HYPOTENSION [None]
  - THROMBOCYTOPENIA [None]
  - PRURITUS [None]
  - NEUTROPENIA [None]
